FAERS Safety Report 19029185 (Version 3)
Quarter: 2021Q4

REPORT INFORMATION
  Report Type: Spontaneous
  Country: PT (occurrence: PT)
  Receive Date: 20210319
  Receipt Date: 20211202
  Transmission Date: 20220303
  Serious: Yes (Hospitalization, Other)
  Sender: FDA-Public Use
  Company Number: PT-MERZ PHARMACEUTICALS GMBH-21-00792

PATIENT
  Age: 84 Year
  Sex: Male

DRUGS (2)
  1. MEMANTINE [Suspect]
     Active Substance: MEMANTINE
     Indication: Amnesia
     Dosage: 20 MILLIGRAM, ONCE A DAY
     Route: 048
  2. MEMANTINE [Suspect]
     Active Substance: MEMANTINE
     Indication: Cognitive disorder

REACTIONS (2)
  - Myoclonus [Recovered/Resolved]
  - Dyskinesia [Recovered/Resolved]
